FAERS Safety Report 5060901-0 (Version None)
Quarter: 2006Q3

REPORT INFORMATION
  Report Type: 
  Country: None (occurrence: None)
  Receive Date: 20060719
  Receipt Date: 20060719
  Transmission Date: 20061208
  Serious: Yes (Life-Threatening, Hospitalization, Disabling)
  Sender: FDA-Public Use
  Company Number: None

PATIENT
  Sex: Male

DRUGS (2)
  1. VIOXX [Suspect]
     Indication: INFLAMMATORY PAIN
  2. VIOXX [Suspect]
     Indication: OSTEOARTHRITIS

REACTIONS (13)
  - CARDIAC DISORDER [None]
  - CHEST DISCOMFORT [None]
  - GASTRITIS [None]
  - GASTROINTESTINAL DISORDER [None]
  - GENERAL PHYSICAL HEALTH DETERIORATION [None]
  - HYPERHIDROSIS [None]
  - MUSCLE SPASMS [None]
  - NERVOUS SYSTEM DISORDER [None]
  - OEDEMA PERIPHERAL [None]
  - PALPITATIONS [None]
  - RENAL COLIC [None]
  - TACHYARRHYTHMIA [None]
  - VENTRICULAR DYSFUNCTION [None]
